FAERS Safety Report 14745161 (Version 1)
Quarter: 2018Q2

REPORT INFORMATION
  Report Type: Report from Study
  Country: HU (occurrence: HU)
  Receive Date: 20180411
  Receipt Date: 20180411
  Transmission Date: 20180711
  Serious: Yes (Hospitalization)
  Sender: FDA-Public Use
  Company Number: US-ASTRAZENECA-2014SE91011

PATIENT
  Age: 23889 Day
  Sex: Female

DRUGS (18)
  1. MONOPRIL [Concomitant]
     Active Substance: FOSINOPRIL SODIUM
     Indication: HYPERTENSION
     Route: 048
  2. METFORMIN [Concomitant]
     Active Substance: METFORMIN HYDROCHLORIDE
     Indication: TYPE 2 DIABETES MELLITUS
     Route: 048
  3. CARDILOPIN [Concomitant]
     Indication: HYPERTENSION
     Route: 048
  4. CAVINTON [Concomitant]
     Active Substance: VINPOCETINE
     Indication: CEREBROVASCULAR ACCIDENT
     Route: 048
  5. CHINOTAL [Concomitant]
     Active Substance: PENTOXIFYLLINE
     Indication: VARICOSE VEIN
     Route: 048
  6. BLINDED PLACEBO [Suspect]
     Active Substance: INVESTIGATIONAL PRODUCT
     Indication: TYPE 2 DIABETES MELLITUS
     Route: 048
     Dates: start: 20140509, end: 20141114
  7. DETRALEX [Concomitant]
     Active Substance: DIOSMIN\HESPERIDIN
     Indication: GASTROOESOPHAGEAL REFLUX DISEASE
  8. L-THYROXINE [Concomitant]
     Active Substance: LEVOTHYROXINE
     Indication: HYPOTHYROIDISM
     Route: 048
  9. PANTOPRAZOLE [Concomitant]
     Active Substance: PANTOPRAZOLE
     Indication: GASTROOESOPHAGEAL REFLUX DISEASE
  10. SIMVASTATIN. [Concomitant]
     Active Substance: SIMVASTATIN
     Route: 048
  11. ALVESCO [Concomitant]
     Active Substance: CICLESONIDE
     Indication: GASTROOESOPHAGEAL REFLUX DISEASE
  12. BLINDED DAPAGLIFLOZIN [Suspect]
     Active Substance: DAPAGLIFLOZIN
     Indication: TYPE 2 DIABETES MELLITUS
     Route: 048
     Dates: start: 20140509, end: 20141114
  13. CLOPIDOGREL BISULFATE. [Concomitant]
     Active Substance: CLOPIDOGREL BISULFATE
     Indication: CEREBROVASCULAR ACCIDENT
     Route: 048
  14. EZETROL [Concomitant]
     Active Substance: EZETIMIBE
     Indication: HYPERLIPIDAEMIA
     Route: 048
  15. LANTUS [Concomitant]
     Active Substance: INSULIN GLARGINE
     Indication: TYPE 2 DIABETES MELLITUS
     Dosage: 20 IU DAILY
     Route: 058
  16. DUOPRIL [Concomitant]
     Indication: HYPERTENSION
     Route: 048
  17. TENAXUM [Concomitant]
     Active Substance: RILMENIDINE
     Indication: HYPERTENSION
     Route: 048
  18. NOVORAPID [Concomitant]
     Active Substance: INSULIN ASPART
     Indication: TYPE 2 DIABETES MELLITUS
     Dosage: 12 IU DAILY
     Route: 058

REACTIONS (1)
  - Bladder cancer [Recovered/Resolved]

NARRATIVE: CASE EVENT DATE: 20140923
